FAERS Safety Report 24772255 (Version 2)
Quarter: 2025Q1

REPORT INFORMATION
  Report Type: Spontaneous
  Country: US (occurrence: US)
  Receive Date: 20241224
  Receipt Date: 20250323
  Transmission Date: 20250409
  Serious: No
  Sender: SANOFI AVENTIS
  Company Number: US-SA-2024SA377721

PATIENT
  Age: 67 Year
  Sex: Female

DRUGS (9)
  1. DUPIXENT [Suspect]
     Active Substance: DUPILUMAB
     Indication: Asthma
     Dosage: 300 MG, QOW
     Route: 058
     Dates: start: 202406, end: 20250214
  2. HYDROXYZINE HYDROCHLORIDE [Concomitant]
     Active Substance: HYDROXYZINE HYDROCHLORIDE
  3. DOXYCYCLINE [Concomitant]
     Active Substance: DOXYCYCLINE
  4. GABAPENTIN [Concomitant]
     Active Substance: GABAPENTIN
  5. VITAMIN B COMPLEX [Concomitant]
     Active Substance: CYANOCOBALAMIN\DEXPANTHENOL\NIACINAMIDE\PYRIDOXINE HYDROCHLORIDE\RIBOFLAVIN 5^-PHOSPHATE SODIUM\THIA
  6. ALBUTEROL SULFATE [Concomitant]
     Active Substance: ALBUTEROL SULFATE
  7. MELOXICAM [Concomitant]
     Active Substance: MELOXICAM
  8. VITAMINS [Concomitant]
     Active Substance: VITAMINS
  9. OMEPRAZOLE [Concomitant]
     Active Substance: OMEPRAZOLE

REACTIONS (4)
  - Cough [Unknown]
  - Nasopharyngitis [Unknown]
  - Asthma [Unknown]
  - Surgery [Unknown]

NARRATIVE: CASE EVENT DATE: 20240101
